FAERS Safety Report 11045315 (Version 3)
Quarter: 2015Q2

REPORT INFORMATION
  Report Type: Report from Study
  Country: DE (occurrence: DE)
  Receive Date: 20150417
  Receipt Date: 20150423
  Transmission Date: 20150821
  Serious: Yes (Hospitalization)
  Sender: FDA-Public Use
  Company Number: DE-ABBVIE-15K-062-1374332-00

PATIENT
  Age: 78 Year
  Sex: Female
  Weight: 70 kg

DRUGS (13)
  1. HUMIRA [Suspect]
     Active Substance: ADALIMUMAB
     Indication: RHEUMATOID ARTHRITIS
     Route: 058
     Dates: start: 20140616
  2. DIHYDROTACHYSTEROL [Concomitant]
     Active Substance: DIHYDROTACHYSTEROL
     Indication: PRODUCT USED FOR UNKNOWN INDICATION
     Dosage: 1-0-0
  3. PROLIA [Concomitant]
     Active Substance: DENOSUMAB
     Indication: PRODUCT USED FOR UNKNOWN INDICATION
     Route: 058
  4. PANTOPRAZOLE [Concomitant]
     Active Substance: PANTOPRAZOLE SODIUM
     Indication: PRODUCT USED FOR UNKNOWN INDICATION
     Dosage: 1-0-0
  5. ALLOPURINOL. [Concomitant]
     Active Substance: ALLOPURINOL
     Indication: PRODUCT USED FOR UNKNOWN INDICATION
  6. MEDAC [Concomitant]
     Indication: PRODUCT USED FOR UNKNOWN INDICATION
     Dosage: 1-1-1
  7. TRAMAL [Concomitant]
     Active Substance: TRAMADOL
     Indication: PRODUCT USED FOR UNKNOWN INDICATION
  8. HUMIRA [Suspect]
     Active Substance: ADALIMUMAB
     Route: 058
  9. VALSARTAN. [Concomitant]
     Active Substance: VALSARTAN
     Indication: PRODUCT USED FOR UNKNOWN INDICATION
     Dosage: 0-0-1
  10. KALINOR [Concomitant]
     Active Substance: POTASSIUM CITRATE
     Indication: PRODUCT USED FOR UNKNOWN INDICATION
     Dosage: 1-0-0
  11. XARELTO [Concomitant]
     Active Substance: RIVAROXABAN
     Indication: PRODUCT USED FOR UNKNOWN INDICATION
     Dosage: 0-1-0
  12. TORASEMIDE [Concomitant]
     Active Substance: TORSEMIDE
     Indication: PRODUCT USED FOR UNKNOWN INDICATION
     Dosage: 1-0-0
  13. DEKRISTOL [Concomitant]
     Active Substance: CHOLECALCIFEROL
     Indication: PRODUCT USED FOR UNKNOWN INDICATION

REACTIONS (23)
  - Microangiopathy [Unknown]
  - Laboratory test abnormal [Unknown]
  - Transient ischaemic attack [Unknown]
  - Nuclear magnetic resonance imaging abnormal [Unknown]
  - Activated partial thromboplastin time prolonged [Unknown]
  - Arteriosclerosis [Unknown]
  - Bundle branch block right [Unknown]
  - C-reactive protein increased [Unknown]
  - Cerebrovascular accident [Recovered/Resolved]
  - Computerised tomogram abnormal [Unknown]
  - Aspartate aminotransferase increased [Unknown]
  - Cerebral atrophy [Unknown]
  - Vascular encephalopathy [Unknown]
  - Cerebral arteriosclerosis [Unknown]
  - Aortic valve incompetence [Unknown]
  - Atrial fibrillation [Unknown]
  - Monocyte count increased [Unknown]
  - Aortic valve sclerosis [Unknown]
  - Left atrial dilatation [Unknown]
  - Systolic dysfunction [Unknown]
  - Amylase increased [Unknown]
  - Fahr^s disease [Unknown]
  - Cardiac failure [Unknown]

NARRATIVE: CASE EVENT DATE: 201503
